FAERS Safety Report 10921116 (Version 2)
Quarter: 2015Q2

REPORT INFORMATION
  Report Type: Spontaneous
  Country: US (occurrence: None)
  Receive Date: 20150316
  Receipt Date: 20150408
  Transmission Date: 20150821
  Serious: Yes (Hospitalization)
  Sender: FDA-Public Use
  Company Number: US-2015CRT000007

PATIENT
  Age: 75 Year
  Sex: Female
  Weight: 72.58 kg

DRUGS (21)
  1. VITAMIN D3 [Concomitant]
     Active Substance: CHOLECALCIFEROL
  2. VITAMIN B12 [Concomitant]
     Active Substance: CYANOCOBALAMIN
  3. RECLAST [Concomitant]
     Active Substance: ZOLEDRONIC ACID
  4. MAGNESIUM CHLORIDE. [Concomitant]
     Active Substance: MAGNESIUM CHLORIDE
  5. SPIRONOLACTONE. [Concomitant]
     Active Substance: SPIRONOLACTONE
  6. VITAMIN C [Concomitant]
     Active Substance: ASCORBIC ACID
  7. SURFAK [Concomitant]
  8. VOLTAREN [Concomitant]
     Active Substance: DICLOFENAC SODIUM
  9. HUMALOG [Concomitant]
     Active Substance: INSULIN LISPRO
  10. PREMARIN [Concomitant]
     Active Substance: ESTROGENS, CONJUGATED
  11. CALCIUM CARBONATE. [Concomitant]
     Active Substance: CALCIUM CARBONATE
  12. AMITIZA [Concomitant]
     Active Substance: LUBIPROSTONE
  13. LANTUS [Concomitant]
     Active Substance: INSULIN GLARGINE
  14. METHIMAZOLE. [Concomitant]
     Active Substance: METHIMAZOLE
  15. KORLYM [Suspect]
     Active Substance: MIFEPRISTONE
     Indication: CUSHING^S SYNDROME
     Dosage: 1 TABLET QD, ORAL
     Route: 048
     Dates: start: 20141020, end: 201411
  16. DIOVAN [Concomitant]
     Active Substance: VALSARTAN
  17. GLIPIZIDE XL [Concomitant]
     Active Substance: GLIPIZIDE
  18. ZOVIRAX [Concomitant]
     Active Substance: ACYCLOVIR
  19. FERROUS SULFATE [Concomitant]
     Active Substance: FERROUS SULFATE\FERROUS SULFATE, DRIED
  20. PRAVASTATIN [Concomitant]
     Active Substance: PRAVASTATIN\PRAVASTATIN SODIUM
  21. SINGULAIR [Concomitant]
     Active Substance: MONTELUKAST SODIUM

REACTIONS (15)
  - Breast calcifications [None]
  - Dizziness [None]
  - Asthenia [None]
  - Blood pressure decreased [None]
  - Condition aggravated [None]
  - Blood glucose fluctuation [None]
  - Headache [None]
  - Fatigue [None]
  - Dyspnoea [None]
  - Blood pressure increased [None]
  - Nausea [None]
  - Hypokalaemia [None]
  - Alopecia [None]
  - Myalgia [None]
  - Gastric disorder [None]

NARRATIVE: CASE EVENT DATE: 2014
